FAERS Safety Report 15787264 (Version 8)
Quarter: 2021Q1

REPORT INFORMATION
  Report Type: Spontaneous
  Country: US (occurrence: US)
  Receive Date: 20190103
  Receipt Date: 20210302
  Transmission Date: 20210419
  Serious: Yes (Other)
  Sender: FDA-Public Use
  Company Number: US-PFIZER INC-2018377314

PATIENT
  Age: 78 Year
  Sex: Female
  Weight: 72 kg

DRUGS (1)
  1. XELJANZ XR [Suspect]
     Active Substance: TOFACITINIB CITRATE
     Indication: RHEUMATOID ARTHRITIS
     Dosage: 11 MG, 1X/DAY
     Route: 048

REACTIONS (5)
  - Weight decreased [Unknown]
  - Illness [Unknown]
  - Peripheral swelling [Not Recovered/Not Resolved]
  - Skin cancer [Unknown]
  - Confusional state [Unknown]

NARRATIVE: CASE EVENT DATE: 2018
